FAERS Safety Report 20219940 (Version 1)
Quarter: 2021Q4

REPORT INFORMATION
  Report Type: Spontaneous
  Country: TR (occurrence: TR)
  Receive Date: 20211222
  Receipt Date: 20211222
  Transmission Date: 20220303
  Serious: Yes (Other)
  Sender: FDA-Public Use
  Company Number: TR-ANIPHARMA-2021-TR-000174

PATIENT
  Age: 17 Year
  Sex: Male

DRUGS (2)
  1. LITHIUM [Suspect]
     Active Substance: LITHIUM
     Indication: Bipolar disorder
     Dosage: 1200 MG DAILY
  2. OLANZAPINE [Concomitant]
     Active Substance: OLANZAPINE
     Dosage: 10 MG DAILY

REACTIONS (3)
  - Dysphagia [Recovered/Resolved]
  - Toxicity to various agents [Recovered/Resolved]
  - Weight decreased [Recovered/Resolved]
